FAERS Safety Report 8926453 (Version 1)
Quarter: 2012Q4

REPORT INFORMATION
  Report Type: 
  Country: US (occurrence: US)
  Receive Date: 20121126
  Receipt Date: 20121126
  Transmission Date: 20130627
  Serious: No
  Sender: FDA-Public Use
  Company Number: US-009507513-1211USA007562

PATIENT
  Age: 58 Year
  Sex: Male

DRUGS (5)
  1. PEGINTRON [Suspect]
     Indication: HEPATITIS C
     Dosage: 120 Microgram, qw
     Dates: start: 20120921
  2. ATORVASTATIN [Concomitant]
  3. PAROXETINE [Concomitant]
  4. LISINOPRIL [Concomitant]
  5. RIBAVIRIN [Suspect]

REACTIONS (2)
  - Injection site haemorrhage [Recovered/Resolved]
  - Product quality issue [Unknown]
